FAERS Safety Report 4303808-6 (Version None)
Quarter: 2004Q1

REPORT INFORMATION
  Report Type: 
  Country: None (occurrence: None)
  Receive Date: 20040224
  Receipt Date: 20040209
  Transmission Date: 20041129
  Serious: Yes (Hospitalization, Disabling, Other)
  Sender: FDA-Public Use
  Company Number: C2003-3064.01

PATIENT
  Age: 66 Year
  Sex: Male
  Weight: 97.977 kg

DRUGS (3)
  1. EXTENDED PHENYTOIN SODIUM [Suspect]
     Indication: CONVULSION PROPHYLAXIS
     Dosage: 100 MG QID, ORAL
     Route: 048
     Dates: start: 20020801, end: 20021202
  2. PAROXETINE HCL [Concomitant]
  3. WARFARIN SODIUM [Concomitant]

REACTIONS (6)
  - ANTICONVULSANT DRUG LEVEL INCREASED [None]
  - CONVULSION [None]
  - FALL [None]
  - HUMERUS FRACTURE [None]
  - JOINT DISLOCATION [None]
  - SYNCOPE [None]
